FAERS Safety Report 18886071 (Version 3)
Quarter: 2021Q1

REPORT INFORMATION
  Report Type: Report from Study
  Country: FR (occurrence: FR)
  Receive Date: 20210212
  Receipt Date: 20210326
  Transmission Date: 20210420
  Serious: Yes (Death, Other)
  Sender: FDA-Public Use
  Company Number: NVSC2020FR348895

PATIENT
  Age: 4 Month
  Sex: Female
  Weight: 6.7 kg

DRUGS (27)
  1. ECULIZUMAB [Concomitant]
     Active Substance: ECULIZUMAB
     Dosage: UNK
     Route: 065
     Dates: start: 20201215
  2. VITAMIN D [Concomitant]
     Active Substance: VITAMIN D NOS
     Indication: PRODUCT USED FOR UNKNOWN INDICATION
     Dosage: 5 DRP, QD
     Route: 065
     Dates: start: 20201107
  3. BEXSERO [Concomitant]
     Active Substance: NEISSERIA MENINGITIDIS GROUP B FHBP FUSION PROTEIN ANTIGEN\NEISSERIA MENINGITIDIS GROUP B NADA PROTEIN ANTIGEN\NEISSERIA MENINGITIDIS GROUP B NHBA FUSION PROTEIN ANTIGEN\NEISSERIA MENINGITIDIS GROUP B STRAIN NZ98/254 OUTER MEMBRANE VESICLE\NEISSERIA MENINGITIDIS SEROGROUP B FHBP FUSION PROTEIN ANTIG
     Indication: PRODUCT USED FOR UNKNOWN INDICATION
     Dosage: UNK
     Route: 065
     Dates: start: 20201124
  4. SOLUPRED [Concomitant]
     Indication: PRODUCT USED FOR UNKNOWN INDICATION
     Dosage: 1 MG/KG, QD (8.4 ML (4 VIALS))
     Route: 048
  5. ECULIZUMAB [Concomitant]
     Active Substance: ECULIZUMAB
     Dosage: 300 MG AT D7
     Route: 065
     Dates: start: 20201124
  6. MAG 2 [Concomitant]
     Active Substance: MAGNESIUM
     Indication: PRODUCT USED FOR UNKNOWN INDICATION
     Dosage: 122 MG, Q24H
     Route: 065
  7. SOLUPRED [Concomitant]
     Dosage: 1 MG/KG, QD (5.5 ML (1 VIAL))
     Route: 048
  8. SOLUPRED [Concomitant]
     Dosage: 7 MG, QD (PER OS)
     Route: 048
     Dates: start: 20201104
  9. ECULIZUMAB [Concomitant]
     Active Substance: ECULIZUMAB
     Indication: PRODUCT USED FOR UNKNOWN INDICATION
     Dosage: UNK
     Route: 065
     Dates: start: 20201118
  10. NACL [Concomitant]
     Active Substance: SODIUM CHLORIDE
     Indication: PRODUCT USED FOR UNKNOWN INDICATION
     Dosage: 6X1ML
     Route: 065
  11. PREDNISOLONE. [Concomitant]
     Active Substance: PREDNISOLONE
     Indication: PRODUCT USED FOR UNKNOWN INDICATION
     Dosage: 2 MG/KG, QD
     Route: 042
  12. BACTRIM [Concomitant]
     Active Substance: SULFAMETHOXAZOLE\TRIMETHOPRIM
     Indication: PRODUCT USED FOR UNKNOWN INDICATION
     Dosage: 180 MG/72 H
     Route: 065
  13. PHOSPHONEUROS [Concomitant]
     Active Substance: CALCIUM PHOSPHATE, DIBASIC, ANHYDROUS\MAGNESIUM GLYCEROPHOSPHATE\PHOSPHORIC ACID\SODIUM PHOSPHATE, DIBASIC
     Indication: PRODUCT USED FOR UNKNOWN INDICATION
     Dosage: 85 MG, Q6H
     Route: 065
  14. ORACILLINE [Concomitant]
     Active Substance: PENICILLIN V
     Indication: PROPHYLAXIS
     Dosage: UNK UNK, Q8H (250 MUI)
     Route: 065
  15. LIQUIGEN [Concomitant]
     Active Substance: MEDIUM-CHAIN TRIGLYCERIDES
     Indication: PRODUCT USED FOR UNKNOWN INDICATION
     Dosage: 8X1ML
     Route: 065
  16. CORTANCYL [Concomitant]
     Active Substance: PREDNISONE
     Indication: PRODUCT USED FOR UNKNOWN INDICATION
     Dosage: 7 MG, Q24H
     Route: 065
  17. ZOLGENSMA [Suspect]
     Active Substance: ONASEMNOGENE ABEPARVOVEC-XIOI
     Indication: SPINAL MUSCULAR ATROPHY
     Dosage: 38.5 ML, ONCE/SINGLE (77X10E13 VECTOR GENOMES/ML)
     Route: 042
     Dates: start: 20201105, end: 20201105
  18. SPECIAFOLDINE [Concomitant]
     Active Substance: FOLIC ACID
     Indication: PRODUCT USED FOR UNKNOWN INDICATION
     Dosage: 2.5 CP/24H
     Route: 065
  19. INEXIUM [Concomitant]
     Active Substance: ESOMEPRAZOLE
     Indication: PROPHYLAXIS
     Dosage: 10 MG, QD
     Route: 048
     Dates: start: 20201107
  20. INEXIUM [Concomitant]
     Active Substance: ESOMEPRAZOLE
     Dosage: 7 MG, Q24H
     Route: 065
  21. NUSINERSEN [Concomitant]
     Active Substance: NUSINERSEN
     Indication: PRODUCT USED FOR UNKNOWN INDICATION
     Dosage: UNK
     Route: 065
  22. NIMENRIX [Concomitant]
     Active Substance: CLOSTRIDIUM TETANI TOXOID ANTIGEN (FORMALDEHYDE INACTIVATED)\MENINGOCOCCAL POLYSACCHARIDE VACCINE, GROUPS A, C, Y,W135 COMBINED
     Indication: PRODUCT USED FOR UNKNOWN INDICATION
     Dosage: UNK
     Route: 065
     Dates: start: 20201124
  23. GLUCIDION [Concomitant]
     Active Substance: GLUCOSE, LIQUID\POTASSIUM CHLORIDE\SODIUM CHLORIDE
     Indication: PRODUCT USED FOR UNKNOWN INDICATION
     Dosage: 2 ML/H
     Route: 065
  24. AMLOR [Concomitant]
     Active Substance: AMLODIPINE BESYLATE
     Indication: PROPHYLAXIS
     Dosage: 3 MG, Q8H
     Route: 065
  25. CATAPRESSAN [Concomitant]
     Active Substance: CLONIDINE
     Indication: PROPHYLAXIS
     Dosage: 18 UG, Q6H
     Route: 065
  26. DOLIPRANE [Concomitant]
     Active Substance: ACETAMINOPHEN
     Indication: PRODUCT USED FOR UNKNOWN INDICATION
     Dosage: 90 MG, Q6H
     Route: 065
  27. HEPARIN [Concomitant]
     Active Substance: HEPARIN SODIUM
     Indication: HAEMOFILTRATION
     Dosage: UNK
     Route: 065

REACTIONS (50)
  - Cardiac arrest [Fatal]
  - Anuria [Fatal]
  - White blood cell count increased [Unknown]
  - Hyponatraemia [Unknown]
  - Eye movement disorder [Unknown]
  - Cardiac disorder [Unknown]
  - Acute kidney injury [Fatal]
  - Haemolytic anaemia [Fatal]
  - Lymphocyte count increased [Unknown]
  - Skin disorder [Unknown]
  - Petechiae [Unknown]
  - Ulcer [Unknown]
  - Diarrhoea [Unknown]
  - Proteinuria [Unknown]
  - Thrombotic microangiopathy [Fatal]
  - Blood creatine phosphokinase increased [Fatal]
  - Body temperature decreased [Fatal]
  - Haemolysis [Fatal]
  - Neutrophil count increased [Unknown]
  - Eosinophil count decreased [Unknown]
  - Hypokalaemia [Unknown]
  - Blood urea increased [Unknown]
  - Faeces discoloured [Fatal]
  - Oedema [Fatal]
  - Blood bilirubin increased [Unknown]
  - Monocyte count increased [Unknown]
  - Skin lesion [Unknown]
  - Respiratory disorder [Unknown]
  - Thrombocytopenia [Fatal]
  - Urine output decreased [Fatal]
  - Haemoglobin decreased [Fatal]
  - Pancreatitis [Unknown]
  - Hypertension [Unknown]
  - Blood chloride increased [Unknown]
  - Protein total increased [Unknown]
  - Aspartate aminotransferase increased [Unknown]
  - Pyrexia [Fatal]
  - Staphylococcus test positive [Unknown]
  - Abdominal pain [Unknown]
  - Blood uric acid decreased [Unknown]
  - Gastrointestinal disorder [Unknown]
  - Troponin increased [Unknown]
  - Hypophagia [Fatal]
  - Peripheral coldness [Fatal]
  - Vomiting [Fatal]
  - Red blood cell count increased [Unknown]
  - Basophil count increased [Unknown]
  - Abdominal distension [Unknown]
  - Fluid retention [Unknown]
  - Purpura [Unknown]

NARRATIVE: CASE EVENT DATE: 20201112
